FAERS Safety Report 5845192-2 (Version None)
Quarter: 2008Q3

REPORT INFORMATION
  Report Type: 
  Country: None (occurrence: None)
  Receive Date: 20080812
  Receipt Date: 20080801
  Transmission Date: 20090109
  Serious: Yes (Hospitalization)
  Sender: FDA-Public Use
  Company Number: SPI200800201

PATIENT
  Age: 75 Year
  Sex: Male

DRUGS (12)
  1. AMITIZA [Suspect]
     Indication: CONSTIPATION
     Dosage: 24 MCG, BID, ORAL
     Route: 048
     Dates: start: 20080410, end: 20080416
  2. COLACE (DOCUSATE SODIUM) [Concomitant]
  3. COUMADIN [Concomitant]
  4. EXELON	/01383201/ (RIVASTIGMINE) [Concomitant]
  5. SPIRONOLACTONE [Concomitant]
  6. DEMADEX  /01036501/ (TORASEMIDE) [Concomitant]
  7. LISINOPRIL [Concomitant]
  8. IRON (IRON) [Concomitant]
  9. METOPROLOL TARTRATE [Concomitant]
  10. NITROGLYCERIN (GLYCERYL TRINITRATE) PATCH [Concomitant]
  11. DIGOXIN [Concomitant]
  12. PROCRIT	/00909301/ (ERYTHROPOIETIN) [Concomitant]

REACTIONS (1)
  - RENAL FAILURE [None]
